FAERS Safety Report 6060598-7 (Version None)
Quarter: 2009Q1

REPORT INFORMATION
  Report Type: 
  Country: None (occurrence: None)
  Receive Date: 20090130
  Receipt Date: 20090130
  Transmission Date: 20090719
  Serious: Yes (Other)
  Sender: FDA-Public Use
  Company Number: None

PATIENT
  Sex: Female

DRUGS (1)
  1. HALDOL DECANOATE 50MG/ML SICOR [Suspect]
     Indication: BIPOLAR DISORDER
     Dosage: 50MG EVERY 4 WEEKS IM
     Route: 030
     Dates: start: 20090122

REACTIONS (1)
  - INJECTION SITE INFECTION [None]
